FAERS Safety Report 8798286 (Version 3)
Quarter: 2012Q4

REPORT INFORMATION
  Report Type: 
  Country: US (occurrence: US)
  Receive Date: 20120920
  Receipt Date: 20121009
  Transmission Date: 20130627
  Serious: Yes (Congenital Anomaly)
  Sender: FDA-Public Use
  Company Number: US-TEVA-359679USA

PATIENT
  Age: 28 Year
  Sex: Female

DRUGS (4)
  1. LAMIVUDINE AND ZIDOVUDINE [Suspect]
     Indication: HIV INFECTION
     Dosage: 2 Tablet Daily;
     Route: 048
     Dates: start: 20120810
  2. LAMIVUDINE AND ZIDOVUDINE [Suspect]
     Indication: LYMPHADENOPATHY
  3. KALETRA [Suspect]
     Indication: HIV INFECTION
     Dosage: 4 Tablet Daily;
     Dates: start: 20120810
  4. KALETRA [Suspect]
     Indication: LYMPHADENOPATHY

REACTIONS (3)
  - Arnold-Chiari malformation [Recovered/Resolved]
  - Neural tube defect [Recovered/Resolved]
  - Cerebral dysgenesis [Recovered/Resolved]
